FAERS Safety Report 17800590 (Version 1)
Quarter: 2020Q2

REPORT INFORMATION
  Report Type: Report from Study
  Country: US (occurrence: US)
  Receive Date: 20200519
  Receipt Date: 20200519
  Transmission Date: 20200714
  Serious: Yes (Other)
  Sender: FDA-Public Use
  Company Number: US-EMD SERONO-9163205

PATIENT
  Sex: Male

DRUGS (1)
  1. REBIF [Suspect]
     Active Substance: INTERFERON BETA-1A
     Indication: PRODUCT USED FOR UNKNOWN INDICATION
     Route: 058
     Dates: start: 20180126

REACTIONS (5)
  - Haemorrhage [Recovered/Resolved]
  - Sensory loss [Recovered/Resolved]
  - Skin laceration [Recovered/Resolved]
  - Muscle spasticity [Recovering/Resolving]
  - Animal bite [Unknown]
